FAERS Safety Report 25635004 (Version 1)
Quarter: 2025Q3

REPORT INFORMATION
  Report Type: Spontaneous
  Country: BR (occurrence: BR)
  Receive Date: 20250801
  Receipt Date: 20250801
  Transmission Date: 20251021
  Serious: Yes (Death, Hospitalization, Other)
  Sender: BRISTOL-MYERS SQUIBB COMPANY
  Company Number: BR-IPSEN Group, Research and Development-2025-17133

PATIENT
  Age: 61 Year
  Sex: Male

DRUGS (3)
  1. NIVOLUMAB [Suspect]
     Active Substance: NIVOLUMAB
     Indication: Clear cell renal cell carcinoma
     Route: 042
     Dates: start: 20250513
  2. CABOMETYX [Suspect]
     Active Substance: CABOZANTINIB S-MALATE
     Indication: Clear cell renal cell carcinoma
     Dosage: 40 MG, QD
     Route: 048
     Dates: start: 20250513
  3. DENOSUMAB [Suspect]
     Active Substance: DENOSUMAB
     Indication: Clear cell renal cell carcinoma
     Dates: start: 20250513

REACTIONS (7)
  - Cardio-respiratory arrest [Unknown]
  - Respiratory distress [Unknown]
  - Decreased appetite [Unknown]
  - Pulmonary embolism [Fatal]
  - Skin lesion [Recovering/Resolving]
  - Anaemia [Unknown]
  - Hypotension [Unknown]

NARRATIVE: CASE EVENT DATE: 20250601
